FAERS Safety Report 9254504 (Version 3)
Quarter: 2013Q3

REPORT INFORMATION
  Report Type: Spontaneous
  Country: PT (occurrence: PT)
  Receive Date: 20130425
  Receipt Date: 20130815
  Transmission Date: 20140515
  Serious: Yes (Death)
  Sender: FDA-Public Use
  Company Number: PT-UCBSA-083782

PATIENT
  Age: 9 Year
  Sex: Male
  Weight: 30 kg

DRUGS (4)
  1. VIMPAT [Suspect]
     Indication: EPILEPSY
     Dosage: 25 MG IN 20 ML PHYSIOLOGICAL SOLUTION
     Dates: start: 20130412, end: 20130413
  2. MIDAZOLAM [Suspect]
     Indication: MEDICAL INDUCTION OF COMA
     Dosage: ROUTE: EV DOSE : UNKNOWN
  3. THIOPENTAL [Suspect]
     Indication: MEDICAL INDUCTION OF COMA
     Dosage: ROUTE: EV DOSE: UNKNOWN
  4. RITUXIMAB [Suspect]
     Dosage: UNKNOWN DOSE
     Dates: start: 20130408, end: 20130408

REACTIONS (1)
  - Cardiac arrest [Fatal]
